FAERS Safety Report 7799904-1 (Version None)
Quarter: 2011Q4

REPORT INFORMATION
  Report Type: 
  Country: None (occurrence: None)
  Receive Date: 20111006
  Receipt Date: 20110929
  Transmission Date: 20120403
  Serious: Yes (Other)
  Sender: FDA-Public Use
  Company Number: DE-GENZYME-CAMP-1001916

PATIENT
  Age: 68 Year
  Sex: Female
  Weight: 90.1 kg

DRUGS (2)
  1. CAMPATH [Suspect]
     Dosage: 30 MG, QD
     Route: 058
     Dates: end: 20110905
  2. CAMPATH [Suspect]
     Indication: T-CELL PROLYMPHOCYTIC LEUKAEMIA
     Dosage: 30 MG QD, CYCLE 1
     Route: 058
     Dates: start: 20110616

REACTIONS (1)
  - OESOPHAGITIS [None]
